FAERS Safety Report 13733424 (Version 1)
Quarter: 2017Q3

REPORT INFORMATION
  Report Type: Spontaneous
  Country: US (occurrence: US)
  Receive Date: 20170707
  Receipt Date: 20170707
  Transmission Date: 20171127
  Serious: No
  Sender: FDA-Public Use
  Company Number: US-ROCHE-1562889

PATIENT
  Sex: Male

DRUGS (3)
  1. VALCYTE [Suspect]
     Active Substance: VALGANCICLOVIR HYDROCHLORIDE
     Indication: ANTIVIRAL PROPHYLAXIS
     Dosage: ADMINISTRATION VIA NG TUBE
     Route: 065
     Dates: start: 20150402
  2. VALCYTE [Suspect]
     Active Substance: VALGANCICLOVIR HYDROCHLORIDE
     Dosage: POSSIBLE ADMINISTRATION VIA ND TUBE
     Route: 065
     Dates: start: 20150409
  3. CYTOVENE IV [Suspect]
     Active Substance: GANCICLOVIR SODIUM
     Indication: ANTIVIRAL PROPHYLAXIS
     Route: 045
     Dates: start: 20150324, end: 20150402

REACTIONS (1)
  - Vomiting [Unknown]
